FAERS Safety Report 14269132 (Version 3)
Quarter: 2018Q1

REPORT INFORMATION
  Report Type: Spontaneous
  Country: CA (occurrence: CA)
  Receive Date: 20171211
  Receipt Date: 20180115
  Transmission Date: 20180508
  Serious: Yes (Other)
  Sender: FDA-Public Use
  Company Number: CA-SA-2017SA241702

PATIENT
  Sex: Male

DRUGS (5)
  1. CLIKSTAR [Suspect]
     Active Substance: CLIKSTAR
     Indication: DIABETES MELLITUS
  2. APIDRA [Suspect]
     Active Substance: INSULIN GLULISINE
     Indication: DIABETES MELLITUS
     Route: 058
     Dates: start: 2009
  3. CLIKSTAR [Suspect]
     Active Substance: CLIKSTAR
     Indication: DIABETES MELLITUS
  4. LANTUS [Suspect]
     Active Substance: INSULIN GLARGINE
     Indication: DIABETES MELLITUS
     Route: 051
     Dates: start: 2009
  5. APIDRA [Suspect]
     Active Substance: INSULIN GLULISINE
     Indication: DIABETES MELLITUS
     Route: 058

REACTIONS (2)
  - Wrong drug administered [Unknown]
  - Generalised tonic-clonic seizure [Unknown]
